FAERS Safety Report 8904005 (Version 3)
Quarter: 2013Q2

REPORT INFORMATION
  Report Type: Report from Study
  Country: CA (occurrence: CA)
  Receive Date: 20121113
  Receipt Date: 20130515
  Transmission Date: 20140414
  Serious: Yes (Hospitalization, Other)
  Sender: FDA-Public Use
  Company Number: PHHY2012CA104520

PATIENT
  Age: 91 Year
  Sex: Female
  Weight: 64 kg

DRUGS (12)
  1. ACLASTA/ZOLEDRONATE [Suspect]
     Indication: OSTEOPOROSIS
     Dosage: UNK UKN, ONCE A YEAR
     Route: 042
  2. ACLASTA/ZOLEDRONATE [Suspect]
     Dosage: UNK UKN, ONCE A YEAR
     Route: 042
  3. ACLASTA/ZOLEDRONATE [Suspect]
     Dosage: UNK UKN, ONCE A YEAR
     Route: 042
  4. ACLASTA/ZOLEDRONATE [Suspect]
     Dosage: UNK UKN, ONCE A YEAR
     Route: 042
     Dates: start: 20120523
  5. VITAMIN D [Concomitant]
     Dosage: 800 IU, DAILY
     Dates: start: 20080222
  6. CALCIUM [Concomitant]
     Dosage: 1000 MG, QD
     Dates: start: 20080222
  7. DILTIAZEM [Concomitant]
     Dosage: UNK UKN, QD
  8. ASACOL [Concomitant]
     Dosage: UNK UKN, QD
  9. EVISTA [Concomitant]
     Dosage: 670 MG, UNK
     Dates: start: 20080505, end: 20081215
  10. PROLIA [Concomitant]
     Dosage: 60 MG, UNK
  11. FORTEO [Concomitant]
     Dosage: 20 MG, DAILY
     Dates: start: 201302
  12. MIACALCIN [Concomitant]
     Dosage: 200 IU, DAILY
     Route: 045

REACTIONS (3)
  - Fall [Unknown]
  - Hip fracture [Unknown]
  - Femoral neck fracture [Unknown]
